FAERS Safety Report 24383292 (Version 2)
Quarter: 2024Q4

REPORT INFORMATION
  Report Type: Spontaneous
  Country: US (occurrence: US)
  Receive Date: 20241001
  Receipt Date: 20241119
  Transmission Date: 20250115
  Serious: No
  Sender: CATALYST PHARMA
  Company Number: US-CATALYST PHARMACEUTICALS-US-CATA-24-00706

PATIENT
  Sex: Male
  Weight: 32.653 kg

DRUGS (5)
  1. AGAMREE [Suspect]
     Active Substance: VAMOROLONE
     Indication: Duchenne muscular dystrophy
     Dosage: 3.9 ML DAILY
     Route: 048
     Dates: start: 20240406
  2. LISINOPRIL [Concomitant]
     Active Substance: LISINOPRIL
     Indication: Cardiovascular disorder
     Dosage: 2.5 MG DAILY
     Route: 065
  3. VITAMIN D3 GUMMY [Concomitant]
     Indication: Hypovitaminosis
     Dosage: 4000 IU DAILY
     Route: 065
  4. MULTIVITAMIN GUMMY [Concomitant]
     Indication: Hypovitaminosis
     Dosage: ONCE DAILY
     Route: 065
  5. MELATONIN [Concomitant]
     Active Substance: MELATONIN
     Indication: Insomnia
     Dosage: 1 MG AS NEEDED
     Route: 065

REACTIONS (2)
  - Emotional disorder [Not Recovered/Not Resolved]
  - Increased appetite [Not Recovered/Not Resolved]

NARRATIVE: CASE EVENT DATE: 20240101
